FAERS Safety Report 24303722 (Version 1)
Quarter: 2024Q3

REPORT INFORMATION
  Report Type: Report from Study
  Country: JP (occurrence: JP)
  Receive Date: 20240910
  Receipt Date: 20240910
  Transmission Date: 20241016
  Serious: Yes (Hospitalization, Disabling, Other)
  Sender: ABBVIE
  Company Number: JP-ABBVIE-19K-087-2935360-00

PATIENT
  Age: 60 Year
  Sex: Male
  Weight: 66 kg

DRUGS (16)
  1. CARBIDOPA\LEVODOPA [Suspect]
     Active Substance: CARBIDOPA\LEVODOPA
     Indication: Parkinson^s disease
     Dosage: MD: 9.3 ML, CD: 1.4 ML/HR ? 16 HRS, ED: 1.0 ML/UNIT ? 2
     Route: 050
     Dates: start: 20190627
  2. CARBIDOPA\LEVODOPA [Suspect]
     Active Substance: CARBIDOPA\LEVODOPA
     Dosage: MD: 12.1 ML CD: 1.6 ML/HR ? 16 HRS ED: 1.0 ML/UNIT  3 DOSES
     Route: 050
     Dates: start: 20190713, end: 20190930
  3. CARBIDOPA\LEVODOPA [Suspect]
     Active Substance: CARBIDOPA\LEVODOPA
     Dosage: MD: 12.1 ML CD: 1.6 ML/HR ? 16 HRS ED: 1.0 ML/UNIT  3 EXTRA DOSES
     Route: 050
     Dates: start: 20191001, end: 20200109
  4. CARBIDOPA\LEVODOPA [Suspect]
     Active Substance: CARBIDOPA\LEVODOPA
     Dosage: MD: 12.1 ML CD: 1.8 ML/HR ? 16 HRS ED: 1.0 ML/UNIT  3 EXTRA DOSES LAST ADMIN DATE 2020
     Route: 050
     Dates: start: 20211001
  5. CARBIDOPA\LEVODOPA [Suspect]
     Active Substance: CARBIDOPA\LEVODOPA
     Dosage: MD: 12.1 ML?CD: 1.8 ML/HR X 16 HRS?ED: 1.0 ML/UNIT X 3
     Route: 050
     Dates: start: 20200109, end: 20211001
  6. CARBIDOPA\LEVODOPA [Suspect]
     Active Substance: CARBIDOPA\LEVODOPA
     Dosage: MD: 13.1 ML?CD: 2.0 ML/HR X 16 HRS?ED: 1.0 ML/UNIT X 3
     Route: 050
     Dates: start: 20211002, end: 20220119
  7. CABERGOLINE [Concomitant]
     Active Substance: CABERGOLINE
     Indication: Parkinson^s disease
     Dosage: 1 MILLIGRAM
     Route: 048
     Dates: start: 20190822, end: 20211014
  8. CABERGOLINE [Concomitant]
     Active Substance: CABERGOLINE
     Indication: Parkinson^s disease
     Dosage: 3 MILLIGRAM
     Route: 048
     Dates: end: 20190801
  9. CABERGOLINE [Concomitant]
     Active Substance: CABERGOLINE
     Indication: Parkinson^s disease
     Dosage: 2 MILLIGRAM
     Route: 048
     Dates: start: 20190802, end: 20190821
  10. CABERGOLINE [Concomitant]
     Active Substance: CABERGOLINE
     Indication: Parkinson^s disease
     Route: 048
  11. ROTIGOTINE [Concomitant]
     Active Substance: ROTIGOTINE
     Indication: Parkinson^s disease
     Route: 062
     Dates: start: 20190713, end: 20211013
  12. ROTIGOTINE [Concomitant]
     Active Substance: ROTIGOTINE
     Indication: Parkinson^s disease
     Route: 062
     Dates: start: 20211014
  13. PRAMIPEXOLE [Concomitant]
     Active Substance: PRAMIPEXOLE\PRAMIPEXOLE DIHYDROCHLORIDE
     Indication: Parkinson^s disease
     Dosage: 3.75 MILLIGRAM
     Route: 048
     Dates: start: 20190809, end: 20211013
  14. PRAMIPEXOLE [Concomitant]
     Active Substance: PRAMIPEXOLE\PRAMIPEXOLE DIHYDROCHLORIDE
     Indication: Parkinson^s disease
     Dosage: 9 MILLIGRAM
     Route: 048
     Dates: end: 20190722
  15. PRAMIPEXOLE [Concomitant]
     Active Substance: PRAMIPEXOLE\PRAMIPEXOLE DIHYDROCHLORIDE
     Indication: Parkinson^s disease
     Dosage: 4.5 MILLIGRAM
     Route: 048
     Dates: start: 20190730, end: 20190808
  16. PRAMIPEXOLE [Concomitant]
     Active Substance: PRAMIPEXOLE\PRAMIPEXOLE DIHYDROCHLORIDE
     Indication: Parkinson^s disease
     Dosage: 6 MILLIGRAM
     Route: 048
     Dates: start: 20190723, end: 20190729

REACTIONS (20)
  - Pneumonia aspiration [Recovered/Resolved with Sequelae]
  - Respiratory failure [Unknown]
  - Hospitalisation [Unknown]
  - Dermatitis contact [Unknown]
  - Sepsis [Unknown]
  - Product administered at inappropriate site [Unknown]
  - Extra dose administered [Unknown]
  - Incorrect dose administered [Unknown]
  - Malaise [Unknown]
  - Erythema [Unknown]
  - Nausea [Unknown]
  - Vomiting [Unknown]
  - Stoma site extravasation [Unknown]
  - Stoma site discharge [Unknown]
  - Diarrhoea [Recovered/Resolved]
  - Therapeutic product effect incomplete [Unknown]
  - Stoma site odour [Unknown]
  - Pyrexia [Unknown]
  - Dyskinesia [Unknown]
  - Device use issue [Unknown]

NARRATIVE: CASE EVENT DATE: 20190101
